FAERS Safety Report 12868534 (Version 4)
Quarter: 2018Q1

REPORT INFORMATION
  Report Type: Report from Study
  Country: US (occurrence: US)
  Receive Date: 20161020
  Receipt Date: 20180105
  Transmission Date: 20180508
  Serious: No
  Sender: FDA-Public Use
  Company Number: US-AMGEN-USASL2016095566

PATIENT
  Age: 71 Year

DRUGS (1)
  1. REPATHA [Suspect]
     Active Substance: EVOLOCUMAB
     Indication: LOW DENSITY LIPOPROTEIN ABNORMAL
     Dosage: 140 MG, UNK
     Route: 065

REACTIONS (4)
  - Nasopharyngitis [Unknown]
  - Off label use [Unknown]
  - Influenza like illness [Unknown]
  - Cough [Unknown]
